FAERS Safety Report 4431466-9 (Version None)
Quarter: 2004Q3

REPORT INFORMATION
  Report Type: 
  Country: None (occurrence: None)
  Receive Date: 20040824
  Receipt Date: 20040813
  Transmission Date: 20050211
  Serious: Yes (Death, Other)
  Sender: FDA-Public Use
  Company Number: AU-BRISTOL-MYERS SQUIBB COMPANY-12670675

PATIENT
  Sex: Male

DRUGS (4)
  1. WARFARIN SODIUM [Suspect]
     Indication: CEREBROVASCULAR DISORDER
     Route: 048
     Dates: start: 20030721, end: 20030725
  2. CLOPIDROGREL BISULFATE [Suspect]
     Route: 048
     Dates: start: 20030721, end: 20030725
  3. AMOXICILLIN AND CLAVULANATE POTASSIUM [Suspect]
     Indication: SEPSIS
     Route: 048
     Dates: start: 20030718, end: 20030724
  4. LANOXIN [Concomitant]

REACTIONS (4)
  - CEREBRAL HAEMORRHAGE [None]
  - CEREBROVASCULAR DISORDER [None]
  - DEATH [None]
  - THROMBOCYTOPENIA [None]
